FAERS Safety Report 5473529-5 (Version None)
Quarter: 2007Q4

REPORT INFORMATION
  Report Type: 
  Country: None (occurrence: None)
  Receive Date: 20071001
  Receipt Date: 20060720
  Transmission Date: 20080405
  Serious: Yes (Other)
  Sender: FDA-Public Use
  Company Number: US-PFIZER INC-2007056454

PATIENT

DRUGS (1)
  1. PHENELZINE SULFATE [Suspect]

REACTIONS (1)
  - INTESTINAL RESECTION [None]
